FAERS Safety Report 23993652 (Version 1)
Quarter: 2024Q2

REPORT INFORMATION
  Report Type: Spontaneous
  Country: SI (occurrence: SI)
  Receive Date: 20240620
  Receipt Date: 20240620
  Transmission Date: 20240716
  Serious: Yes (Life-Threatening, Hospitalization, Other)
  Sender: FDA-Public Use
  Company Number: SI-GLENMARK PHARMACEUTICALS-2024GMK090444

PATIENT
  Age: 60 Year
  Sex: Female

DRUGS (15)
  1. OLANZAPINE [Suspect]
     Active Substance: OLANZAPINE
     Indication: Psychotic disorder
     Dosage: 5 MILLIGRAM, ONCE A DAY
     Route: 065
  2. ARIPIPRAZOLE [Suspect]
     Active Substance: ARIPIPRAZOLE
     Indication: Extrapyramidal disorder
     Dosage: 5 MILLIGRAM, ONCE A DAY
     Route: 065
  3. ARIPIPRAZOLE [Suspect]
     Active Substance: ARIPIPRAZOLE
     Dosage: 10 MILLIGRAM, ONCE A DAY
     Route: 065
  4. BREXPIPRAZOLE [Suspect]
     Active Substance: BREXPIPRAZOLE
     Indication: Akathisia
     Dosage: 1 MILLIGRAM
     Route: 065
  5. BIPERIDEN [Suspect]
     Active Substance: BIPERIDEN
     Indication: Bradykinesia
     Dosage: 4 MILLIGRAM(6 MILLIGRAM PER DAY DIVIDED IN TWO DOSES)
     Route: 065
  6. BIPERIDEN [Suspect]
     Active Substance: BIPERIDEN
     Indication: Muscle rigidity
     Dosage: 6 MILLIGRAM, ONCE A DAY
     Route: 065
  7. BIPERIDEN [Suspect]
     Active Substance: BIPERIDEN
     Indication: Reduced facial expression
  8. RISPERIDONE [Suspect]
     Active Substance: RISPERIDONE
     Indication: Psychotic disorder
     Dosage: 6 MILLIGRAM, ONCE A DAY
     Route: 065
     Dates: start: 202210
  9. RISPERIDONE [Suspect]
     Active Substance: RISPERIDONE
     Dosage: 2 MILLIGRAM, ONCE A DAY
     Route: 065
     Dates: start: 2022, end: 2022
  10. RISPERIDONE [Suspect]
     Active Substance: RISPERIDONE
     Dosage: 9 MILLIGRAM, ONCE A DAY
     Route: 065
     Dates: start: 2022
  11. RISPERIDONE [Suspect]
     Active Substance: RISPERIDONE
     Dosage: GRADUALLY REDUCED TO 2 MG/DAY DIVIDED INTO TWO DOSES OVER THE FOLLOWING 3 DAYS
     Route: 065
     Dates: start: 2022
  12. RISPERIDONE [Suspect]
     Active Substance: RISPERIDONE
     Dosage: GRADUALLY ESCALATED TO 9 MG/DAY, DIVIDED INTO TWO DOSES
     Route: 065
     Dates: start: 2022
  13. RISPERIDONE [Suspect]
     Active Substance: RISPERIDONE
     Dosage: REDUCED TO 6 MG/DAY
     Route: 065
     Dates: start: 202210
  14. FLUPHENAZINE [Suspect]
     Active Substance: FLUPHENAZINE
     Indication: Product used for unknown indication
     Dosage: 10 MILLIGRAM, ONCE A DAY (DIVIDED INTO TWO DOSES)
     Route: 065
     Dates: start: 202208
  15. FLUPHENAZINE [Suspect]
     Active Substance: FLUPHENAZINE
     Dosage: REDUCED
     Route: 065
     Dates: start: 202210, end: 202210

REACTIONS (15)
  - Neuroleptic malignant syndrome [Recovered/Resolved]
  - Influenza [Unknown]
  - Enterobacter infection [Unknown]
  - Cogwheel rigidity [Recovered/Resolved]
  - Acute respiratory distress syndrome [Unknown]
  - Dysphonia [Recovered/Resolved]
  - Akathisia [Recovered/Resolved]
  - Pneumonia bacterial [Unknown]
  - Dysphagia [Unknown]
  - Extrapyramidal disorder [Unknown]
  - Staphylococcal infection [Unknown]
  - Reduced facial expression [Recovered/Resolved]
  - Bradykinesia [Recovered/Resolved]
  - Pneumonia [Recovered/Resolved]
  - Respiratory distress [Recovered/Resolved]

NARRATIVE: CASE EVENT DATE: 20220101
